FAERS Safety Report 17767440 (Version 2)
Quarter: 2020Q2

REPORT INFORMATION
  Report Type: Spontaneous
  Country: CN (occurrence: CN)
  Receive Date: 20200511
  Receipt Date: 20200518
  Transmission Date: 20200714
  Serious: Yes (Death)
  Sender: FDA-Public Use
  Company Number: CN-ASTRAZENECA-2020SE61532

PATIENT
  Age: 56 Year
  Sex: Male
  Weight: 86 kg

DRUGS (1)
  1. IMFINZI [Suspect]
     Active Substance: DURVALUMAB
     Dosage: 500MG/10ML. THE PATIENT HAD BEEN TREATED FOR 6 PERIODS. THE LAST DOSE WAS 1000MG/PERIOD.
     Route: 042
     Dates: start: 201912, end: 202004

REACTIONS (1)
  - Malignant neoplasm progression [Fatal]
